FAERS Safety Report 18612275 (Version 1)
Quarter: 2020Q4

REPORT INFORMATION
  Report Type: Report from Study
  Country: DE (occurrence: DE)
  Receive Date: 20201214
  Receipt Date: 20201214
  Transmission Date: 20210114
  Serious: Yes (Hospitalization)
  Sender: FDA-Public Use
  Company Number: DE-MYLANLABS-2020M1101119

PATIENT
  Age: 75 Year
  Sex: Male
  Weight: 76 kg

DRUGS (8)
  1. AFLIBERCEPT [Suspect]
     Active Substance: AFLIBERCEPT
     Dosage: 288 MILLIGRAM, CYCLE (288 MG, QCY)
     Route: 042
     Dates: start: 20190605, end: 20190605
  2. LEUCOVORIN                         /00566701/ [Suspect]
     Active Substance: LEUCOVORIN
     Dosage: 651 MILLIGRAM, CYCLE (651 MG, QCY)
     Route: 042
     Dates: start: 20190605, end: 20190605
  3. 5-FU                               /00098801/ [Suspect]
     Active Substance: FLUOROURACIL
     Indication: COLORECTAL CANCER METASTATIC
     Dosage: 5208 MILLIGRAM, CYCLE 5208 MG, QCY)
     Route: 042
     Dates: start: 20190605, end: 20190605
  4. 5-FU                               /00098801/ [Suspect]
     Active Substance: FLUOROURACIL
     Dosage: 5208 MILLIGRAM, CYCLE (5208 MG, QCY)
     Route: 042
     Dates: start: 20190821, end: 20190821
  5. LEUCOVORIN                         /00566701/ [Suspect]
     Active Substance: LEUCOVORIN
     Indication: COLORECTAL CANCER METASTATIC
     Dosage: 651 MILLIGRAM, CYCLE (651 MG, QCY)
     Route: 042
     Dates: start: 20190821, end: 20190821
  6. OXALIPLATIN. [Suspect]
     Active Substance: OXALIPLATIN
     Indication: COLORECTAL CANCER METASTATIC
     Dosage: 158 MILLIGRAM, CYCLE (158 MG, QCY)
     Route: 042
     Dates: start: 20190821, end: 20190821
  7. OXALIPLATIN. [Suspect]
     Active Substance: OXALIPLATIN
     Dosage: 158 MILLIGRAM, CYCLE (158 MG, QCY)
     Route: 042
     Dates: start: 20190605, end: 20190605
  8. AFLIBERCEPT [Suspect]
     Active Substance: AFLIBERCEPT
     Indication: COLORECTAL CANCER METASTATIC
     Dosage: 288 MILLIGRAM, CYCLE (288 MG, QCY)
     Route: 042
     Dates: start: 20190807, end: 20190807

REACTIONS (1)
  - Post procedural bile leak [Recovered/Resolved]

NARRATIVE: CASE EVENT DATE: 20191017
